FAERS Safety Report 6103180-5 (Version None)
Quarter: 2009Q1

REPORT INFORMATION
  Report Type: 
  Country: None (occurrence: None)
  Receive Date: 20090302
  Receipt Date: 20090223
  Transmission Date: 20090719
  Serious: Yes (Other)
  Sender: FDA-Public Use
  Company Number: 041649

PATIENT
  Age: 27 Year
  Sex: Male

DRUGS (2)
  1. CLARAVIS [Suspect]
     Indication: ACNE CYSTIC
     Dosage: 40 MG, QD, ORAL, 40 MG, BID, ORAL
     Route: 048
     Dates: start: 20081117, end: 20081218
  2. CLARAVIS [Suspect]
     Indication: ACNE CYSTIC
     Dosage: 40 MG, QD, ORAL, 40 MG, BID, ORAL
     Route: 048
     Dates: start: 20081219

REACTIONS (2)
  - DRUG EXPOSURE DURING PREGNANCY [None]
  - PATERNAL DRUGS AFFECTING FOETUS [None]
